FAERS Safety Report 14858967 (Version 5)
Quarter: 2019Q2

REPORT INFORMATION
  Report Type: Report from Study
  Country: MX (occurrence: MX)
  Receive Date: 20180508
  Receipt Date: 20190419
  Transmission Date: 20190711
  Serious: Yes (Hospitalization, Other)
  Sender: FDA-Public Use
  Company Number: PHHY2018MX001866

PATIENT
  Age: 79 Year
  Sex: Female
  Weight: 72 kg

DRUGS (11)
  1. EXFORGE HCT [Suspect]
     Active Substance: AMLODIPINE BESYLATE\HYDROCHLOROTHIAZIDE\VALSARTAN
     Dosage: 0.3 DF (AMLODIPINE 10 MG, HYDROCHLOROTHIAZIDE 25 MG, VALSARTAN 320 MG), QD (IN MORNING AND NIGHT)
     Route: 048
  2. ANAPSIQUE [Concomitant]
     Active Substance: AMITRIPTYLINE HYDROCHLORIDE
     Indication: PAIN
     Dosage: 0.5 MG, QHS (6 MONTHS AGO)
     Route: 048
  3. EXFORGE HCT [Suspect]
     Active Substance: AMLODIPINE BESYLATE\HYDROCHLOROTHIAZIDE\VALSARTAN
     Dosage: 0.6 DF (AMLODIPINE 25MG, HYDROCHLOROTHIAZIDE 10 MG AND VALSARTAN 320MG), QD (APPROX 2 YEARS AGO)
     Route: 048
  4. SIMVASTATIN. [Concomitant]
     Active Substance: SIMVASTATIN
     Indication: BLOOD CHOLESTEROL ABNORMAL
     Dosage: 1 DF, QD (3 MONTHS AGO)
     Route: 048
  5. ANAPSIQUE [Concomitant]
     Active Substance: AMITRIPTYLINE HYDROCHLORIDE
     Indication: INSOMNIA
  6. ESCITALOPRAM [Concomitant]
     Active Substance: ESCITALOPRAM OXALATE
     Indication: ANXIETY
     Dosage: 1 DF, QHS
     Route: 048
  7. ESCITALOPRAM [Concomitant]
     Active Substance: ESCITALOPRAM OXALATE
     Indication: DEPRESSION
  8. EXFORGE HCT [Suspect]
     Active Substance: AMLODIPINE BESYLATE\HYDROCHLOROTHIAZIDE\VALSARTAN
     Indication: HYPERTENSION
     Dosage: 1 DF, QD (AMLODIPINE 10 MG, HYDROCHLOROTHIAZIDE 25 MG, VALSARTAN 320 MG) (3 YEARS AGO)
     Route: 048
  9. LOZAM [Concomitant]
     Indication: INSOMNIA
  10. EXFORGE HCT [Suspect]
     Active Substance: AMLODIPINE BESYLATE\HYDROCHLOROTHIAZIDE\VALSARTAN
     Dosage: 0.6 DF (AMLODIPINE 25MG, HYDROCHLOROTHIAZIDE 10 MG AND VALSARTAN 320MG), QD (APPROX 2 YEARS AGO)
     Route: 048
     Dates: start: 2016
  11. LOZAM [Concomitant]
     Indication: PAIN
     Dosage: 0.5 DF, QHS
     Route: 065

REACTIONS (23)
  - Musculoskeletal discomfort [Unknown]
  - Breast pain [Unknown]
  - Arthralgia [Unknown]
  - Haemoglobin decreased [Recovered/Resolved]
  - Spinal pain [Unknown]
  - Irritable bowel syndrome [Not Recovered/Not Resolved]
  - Hypotension [Recovered/Resolved]
  - Pain in extremity [Recovered/Resolved]
  - Blood pressure increased [Recovered/Resolved]
  - Pain in extremity [Unknown]
  - Fear [Unknown]
  - Product prescribing error [Not Recovered/Not Resolved]
  - Internal haemorrhage [Recovered/Resolved]
  - Cervical spinal stenosis [Not Recovered/Not Resolved]
  - Sciatica [Not Recovered/Not Resolved]
  - Ulcer [Recovered/Resolved]
  - Dizziness [Recovered/Resolved]
  - Wrong technique in product usage process [Not Recovered/Not Resolved]
  - Internal haemorrhage [Not Recovered/Not Resolved]
  - Muscle spasms [Recovered/Resolved]
  - Blood iron decreased [Recovered/Resolved]
  - Breast mass [Recovered/Resolved]
  - Abdominal pain [Unknown]

NARRATIVE: CASE EVENT DATE: 201811
